FAERS Safety Report 13889330 (Version 1)
Quarter: 2017Q3

REPORT INFORMATION
  Report Type: Spontaneous
  Country: US (occurrence: US)
  Receive Date: 20170822
  Receipt Date: 20170822
  Transmission Date: 20171127
  Serious: No
  Sender: FDA-Public Use
  Company Number: US-ROCHE-1434828

PATIENT
  Sex: Female

DRUGS (11)
  1. ACTEMRA [Suspect]
     Active Substance: TOCILIZUMAB
     Indication: RHEUMATOID ARTHRITIS
     Route: 058
     Dates: start: 20140201
  2. MINERAL OIL. [Concomitant]
     Active Substance: MINERAL OIL
  3. FISH OIL [Concomitant]
     Active Substance: FISH OIL
  4. VITAMIN E [Concomitant]
     Active Substance: .ALPHA.-TOCOPHEROL
  5. FLAXSEED [Concomitant]
     Active Substance: FLAX SEED
  6. METHOTREXATE. [Concomitant]
     Active Substance: METHOTREXATE
  7. TURMERIC [Concomitant]
     Active Substance: HERBALS\TURMERIC
  8. ALEVE [Concomitant]
     Active Substance: NAPROXEN SODIUM
  9. GINGER ROOT [Concomitant]
     Active Substance: GINGER
  10. SIMVASTATIN. [Concomitant]
     Active Substance: SIMVASTATIN
  11. FOLIC ACID. [Concomitant]
     Active Substance: FOLIC ACID

REACTIONS (3)
  - Injection site reaction [Unknown]
  - Pain [Unknown]
  - Musculoskeletal stiffness [Unknown]
